FAERS Safety Report 22400193 (Version 1)
Quarter: 2023Q2

REPORT INFORMATION
  Report Type: Spontaneous
  Country: US (occurrence: None)
  Receive Date: 20230601
  Receipt Date: 20230601
  Transmission Date: 20230721
  Serious: Yes (Other)
  Sender: FDA-Public Use
  Company Number: None

PATIENT
  Age: 38 Year
  Sex: Male
  Weight: 99 kg

DRUGS (1)
  1. HERBALS\MITRAGYNINE [Suspect]
     Active Substance: HERBALS\MITRAGYNINE
     Indication: Anxiety
     Dates: start: 20220818, end: 20230601

REACTIONS (9)
  - Dependence [None]
  - Withdrawal syndrome [None]
  - Irritability [None]
  - Pain [None]
  - Nausea [None]
  - Vomiting [None]
  - Diarrhoea [None]
  - Judgement impaired [None]
  - Asthenia [None]

NARRATIVE: CASE EVENT DATE: 20230601
